FAERS Safety Report 7114461 (Version 25)
Quarter: 2014Q2

REPORT INFORMATION
  Report Type: Spontaneous
  Country: US (occurrence: US)
  Receive Date: 20090914
  Receipt Date: 20140530
  Transmission Date: 20141212
  Serious: Yes (Death, Other)
  Sender: FDA-Public Use
  Company Number: PHEH2009US10768

PATIENT
  Sex: Male

DRUGS (13)
  1. AREDIA [Suspect]
     Route: 042
     Dates: start: 1997
  2. ZOMETA [Suspect]
     Route: 042
     Dates: start: 1997
  3. PROSCAR [Concomitant]
  4. PROTONIX [Concomitant]
  5. ENDOCET [Concomitant]
  6. DEXAMETHASONE [Concomitant]
  7. BACTRIM [Concomitant]
  8. NEXIUM [Concomitant]
  9. CYMBALTA [Concomitant]
  10. XANAX [Concomitant]
  11. REVLIMID [Concomitant]
  12. EFFEXOR [Concomitant]
  13. ASPIRIN [Concomitant]

REACTIONS (118)
  - Pneumonia [Fatal]
  - Metastasis [Fatal]
  - Lung neoplasm malignant [Fatal]
  - Lung cancer metastatic [Fatal]
  - Osteonecrosis of jaw [Fatal]
  - Osteomyelitis [Fatal]
  - Exposed bone in jaw [Fatal]
  - Osteitis [Fatal]
  - Gingivitis [Fatal]
  - Gingival bleeding [Fatal]
  - Oral disorder [Fatal]
  - Bone lesion [Fatal]
  - Tooth loss [Fatal]
  - Dental caries [Fatal]
  - Mouth ulceration [Fatal]
  - Neoplasm malignant [Unknown]
  - Gastric ulcer [Unknown]
  - Musculoskeletal discomfort [Unknown]
  - Dyspnoea [Unknown]
  - Obstructive airways disorder [Unknown]
  - Pulmonary mass [Unknown]
  - Lymphadenopathy mediastinal [Unknown]
  - Lung adenocarcinoma stage III [Unknown]
  - Hiatus hernia [Unknown]
  - Osteoarthritis [Unknown]
  - Rib fracture [Unknown]
  - Metastases to adrenals [Unknown]
  - Metastases to bone [Unknown]
  - Paraesthesia [Unknown]
  - Barrett^s oesophagus [Unknown]
  - Diverticulum oesophageal [Unknown]
  - Gastrooesophageal reflux disease [Unknown]
  - Oesophageal ulcer [Unknown]
  - Mental status changes [Unknown]
  - Compression fracture [Unknown]
  - Osteoporosis [Unknown]
  - Ischaemia [Unknown]
  - Dilatation ventricular [Unknown]
  - Renal cyst [Unknown]
  - Hepatic cyst [Unknown]
  - Intervertebral disc protrusion [Unknown]
  - Tachycardia [Unknown]
  - Pericardial effusion [Unknown]
  - Left ventricular dysfunction [Unknown]
  - Spinal column stenosis [Unknown]
  - Cerebral small vessel ischaemic disease [Unknown]
  - Nodule [Unknown]
  - Adenocarcinoma [Unknown]
  - VIth nerve paralysis [Unknown]
  - Pathological fracture [Unknown]
  - Pancytopenia [Unknown]
  - Cerebral atrophy [Unknown]
  - Lacunar infarction [Unknown]
  - Psychotic disorder [Unknown]
  - Interstitial lung disease [Unknown]
  - Atelectasis [Unknown]
  - Lung infiltration [Unknown]
  - Emphysema [Unknown]
  - Pneumonitis [Unknown]
  - Depression [Unknown]
  - Chronic obstructive pulmonary disease [Unknown]
  - Ligament disorder [Unknown]
  - Mastoiditis [Unknown]
  - Joint effusion [Unknown]
  - Hypoprothrombinaemia [Unknown]
  - Anaemia [Unknown]
  - Osteolysis [Unknown]
  - Arthralgia [Unknown]
  - Decubitus ulcer [Unknown]
  - Anxiety [Unknown]
  - Hip fracture [Unknown]
  - Intervertebral disc compression [Unknown]
  - Pain in extremity [Unknown]
  - Phlebitis superficial [Unknown]
  - Peripheral swelling [Unknown]
  - Thrombophlebitis superficial [Unknown]
  - Hyperglycaemia [Unknown]
  - Neutropenia [Unknown]
  - Leukopenia [Unknown]
  - Mood swings [Unknown]
  - Malignant mediastinal neoplasm [Unknown]
  - Bone cancer metastatic [Unknown]
  - Diabetes mellitus [Unknown]
  - Obesity [Unknown]
  - Neck pain [Unknown]
  - Muscle spasms [Unknown]
  - Chest pain [Unknown]
  - Abdominal pain [Unknown]
  - Fatigue [Unknown]
  - Intervertebral disc space narrowing [Unknown]
  - Deep vein thrombosis [Unknown]
  - Pleural fibrosis [Unknown]
  - Delirium [Unknown]
  - Oesophagitis [Unknown]
  - Diplopia [Unknown]
  - Metastases to lymph nodes [Unknown]
  - Dyspnoea exertional [Unknown]
  - Muscular weakness [Unknown]
  - Back pain [Unknown]
  - Dysgeusia [Unknown]
  - Erythema [Unknown]
  - Haemorrhoids [Unknown]
  - Haematochezia [Unknown]
  - Agitation [Unknown]
  - Productive cough [Unknown]
  - Hyperhidrosis [Unknown]
  - Hot flush [Unknown]
  - Plasma cell myeloma [Unknown]
  - Malignant neoplasm progression [Unknown]
  - Aggression [Unknown]
  - Oedema peripheral [Unknown]
  - Frustration [Unknown]
  - Tenderness [Unknown]
  - Lethargy [Unknown]
  - Dyspnoea paroxysmal nocturnal [Unknown]
  - Dysphagia [Unknown]
  - Vomiting [Unknown]
  - Diarrhoea [Unknown]
